FAERS Safety Report 5567238-1 (Version None)
Quarter: 2007Q4

REPORT INFORMATION
  Report Type: 
  Country: None (occurrence: None)
  Receive Date: 20071219
  Receipt Date: 20071218
  Transmission Date: 20080405
  Serious: No
  Sender: FDA-Public Use
  Company Number: US-BOEHRINGER INGELHEIM PHARMACEUTICALS, INC.-2007-BP-23598BP

PATIENT
  Age: 75 Year
  Sex: Female
  Weight: 66 kg

DRUGS (8)
  1. CATAPRES-TTS-1 [Suspect]
     Indication: HYPERTENSION
     Route: 061
     Dates: start: 20070723, end: 20071101
  2. DYNACIRC CR [Concomitant]
     Indication: HYPERTENSION
     Route: 048
  3. GINKO BILOBA [Concomitant]
     Route: 048
  4. LASIX [Concomitant]
     Route: 048
  5. LORAZEPAM [Concomitant]
  6. LOZOL [Concomitant]
  7. CARDURA [Concomitant]
  8. POTASSIUM CHLORIDE [Concomitant]

REACTIONS (5)
  - ANXIETY [None]
  - APPLICATION SITE DERMATITIS [None]
  - APPLICATION SITE IRRITATION [None]
  - APPLICATION SITE PRURITUS [None]
  - BLOOD PRESSURE INADEQUATELY CONTROLLED [None]
